FAERS Safety Report 23709489 (Version 1)
Quarter: 2024Q2

REPORT INFORMATION
  Report Type: Spontaneous
  Country: US (occurrence: US)
  Receive Date: 20240404
  Receipt Date: 20240404
  Transmission Date: 20240716
  Serious: No
  Sender: FDA-Public Use
  Company Number: US-BAUSCHBL-2024BNL004039

PATIENT
  Age: 76 Year
  Sex: Female

DRUGS (1)
  1. XIIDRA [Suspect]
     Active Substance: LIFITEGRAST
     Indication: Dry eye
     Dosage: ONE DROP TWICE DAILY IN EACH EYE
     Route: 047
     Dates: start: 20240307

REACTIONS (2)
  - Dry skin [Unknown]
  - Skin wrinkling [Unknown]

NARRATIVE: CASE EVENT DATE: 20240327
